FAERS Safety Report 5874652-3 (Version None)
Quarter: 2008Q3

REPORT INFORMATION
  Report Type: 
  Country: None (occurrence: None)
  Receive Date: 20080902
  Receipt Date: 20080825
  Transmission Date: 20090109
  Serious: Yes (Life-Threatening, Hospitalization)
  Sender: FDA-Public Use
  Company Number: 2008S1008576

PATIENT
  Age: 60 Year
  Sex: Female

DRUGS (1)
  1. PHOSPHOSODA FLAVOR NOT SPECIFIED (SODIUM PHOSPHATE DIBASIC/SODIUM PHOS [Suspect]
     Dosage: 90 ML;X1;PO
     Route: 048
     Dates: start: 20070827, end: 20070827

REACTIONS (3)
  - CARDIAC ARREST [None]
  - HYPERPHOSPHATAEMIA [None]
  - HYPOKALAEMIA [None]
